FAERS Safety Report 4711343-6 (Version None)
Quarter: 2005Q3

REPORT INFORMATION
  Report Type: 
  Country: None (occurrence: None)
  Receive Date: 20050708
  Receipt Date: 20050628
  Transmission Date: 20060218
  Serious: Yes (Other)
  Sender: FDA-Public Use
  Company Number: 2005094137

PATIENT
  Age: 84 Year
  Sex: Female
  Weight: 63.5036 kg

DRUGS (7)
  1. CELEBREX [Suspect]
     Indication: ARTHRITIS
     Dosage: 200 MG (200 MG, 1 IN 1 D), ORAL
  2. LIPITOR [Concomitant]
  3. LEVOHROID (LEVOTHYROXINE SODIUM) [Concomitant]
  4. NORVASC [Concomitant]
  5. DITROPAN [Concomitant]
  6. TIMOLOL MALEATE [Concomitant]
  7. XALATAN [Concomitant]

REACTIONS (4)
  - BEDRIDDEN [None]
  - INADEQUATE ANALGESIA [None]
  - MACULAR DEGENERATION [None]
  - MUSCULOSKELETAL STIFFNESS [None]
